FAERS Safety Report 4454693-3 (Version None)
Quarter: 2004Q3

REPORT INFORMATION
  Report Type: 
  Country: None (occurrence: None)
  Receive Date: 20040824
  Receipt Date: 20030813
  Transmission Date: 20050211
  Serious: Yes (Hospitalization)
  Sender: FDA-Public Use
  Company Number: 2003IC000546

PATIENT
  Age: 55 Year
  Sex: Male

DRUGS (9)
  1. FLUOROURACIL [Suspect]
     Dosage: SEE IMAGE
     Dates: start: 20030521, end: 20030521
  2. FLUOROURACIL [Suspect]
     Dosage: SEE IMAGE
     Dates: start: 20030521, end: 20030522
  3. FLUOROURACIL [Suspect]
     Dosage: SEE IMAGE
     Dates: start: 20030522, end: 20030522
  4. FLUOROURACIL [Suspect]
     Dosage: SEE IMAGE
     Dates: start: 20030522, end: 20030523
  5. GW572016 TABLET [Suspect]
     Indication: COLON CANCER METASTATIC
     Dosage: 1250 MG; DAILY; ORAL
     Route: 048
     Dates: start: 20030521, end: 20030526
  6. IRINOTECAN [Suspect]
     Dosage: 240 MG; DAILY; INTRAVENOUS
     Route: 042
     Dates: start: 20030521, end: 20030521
  7. CALCIUM FOLINATE [Suspect]
     Dosage: 400 MG; DAILY; INRAVENOUS
     Route: 042
     Dates: start: 20030521, end: 20030521
  8. CALCIUM FOLINATE [Suspect]
     Dosage: 400 MG; DAILY; INRAVENOUS
     Route: 042
     Dates: start: 20030522, end: 20030522
  9. KEFLEX [Concomitant]

REACTIONS (3)
  - DEHYDRATION [None]
  - DIARRHOEA [None]
  - NEUTROPENIA [None]
